FAERS Safety Report 22927103 (Version 2)
Quarter: 2023Q4

REPORT INFORMATION
  Report Type: Spontaneous
  Country: US (occurrence: US)
  Receive Date: 20230911
  Receipt Date: 20231005
  Transmission Date: 20240110
  Serious: Yes (Other)
  Sender: FDA-Public Use
  Company Number: US-PFIZER INC-202300266007

PATIENT
  Age: 52 Year
  Sex: Male

DRUGS (1)
  1. OXBRYTA [Suspect]
     Active Substance: VOXELOTOR
     Indication: Sickle cell disease
     Dosage: 1500 MG, 1X/DAY (500MG/3 TABLETS BY MOUTH ONCE DAILY)
     Route: 048

REACTIONS (2)
  - Foreign body in throat [Unknown]
  - Product size issue [Unknown]
